FAERS Safety Report 15131148 (Version 1)
Quarter: 2018Q3

REPORT INFORMATION
  Report Type: Spontaneous
  Country: US (occurrence: US)
  Receive Date: 20180711
  Receipt Date: 20180711
  Transmission Date: 20181010
  Serious: No
  Sender: FDA-Public Use
  Company Number: US-NEOS THERAPEUTICS, LP-2018NEO00063

PATIENT
  Age: 17 Year
  Sex: Male
  Weight: 60.77 kg

DRUGS (3)
  1. VALACYCLOVIR [Concomitant]
     Active Substance: VALACYCLOVIR HYDROCHLORIDE
     Dosage: UNK, AS NEEDED
  2. COTEMPLA XR?ODT [Suspect]
     Active Substance: METHYLPHENIDATE
     Indication: ATTENTION DEFICIT/HYPERACTIVITY DISORDER
     Dosage: UNK
     Route: 048
     Dates: start: 20180501
  3. COTEMPLA XR?ODT [Suspect]
     Active Substance: METHYLPHENIDATE
     Indication: ATTENTION DEFICIT/HYPERACTIVITY DISORDER
     Dosage: 17.3 MG, 1X/DAY IN THE AM
     Route: 048
     Dates: start: 20180309, end: 20180426

REACTIONS (2)
  - Tension [Unknown]
  - Anger [Unknown]

NARRATIVE: CASE EVENT DATE: 20180426
